FAERS Safety Report 8925140 (Version 1)
Quarter: 2012Q4

REPORT INFORMATION
  Report Type: 
  Country: US (occurrence: US)
  Receive Date: 20121126
  Receipt Date: 20121126
  Transmission Date: 20130627
  Serious: Yes (Hospitalization)
  Sender: FDA-Public Use
  Company Number: US-ASTELLAS-2012US011344

PATIENT
  Age: 78 Year
  Sex: Male

DRUGS (1)
  1. PROGRAF [Suspect]
     Indication: RENAL FAILURE
     Dosage: 4 mg every morning/3 mg in evening
     Route: 048
     Dates: start: 20100804, end: 20121116

REACTIONS (2)
  - Off label use [Unknown]
  - Hospitalisation [Unknown]
